FAERS Safety Report 8505490-0 (Version None)
Quarter: 2012Q3

REPORT INFORMATION
  Report Type: 
  Country: None (occurrence: None)
  Receive Date: 20120712
  Receipt Date: 20120705
  Transmission Date: 20120928
  Serious: Yes (Other)
  Sender: FDA-Public Use
  Company Number: GB-JNJFOC-20120703696

PATIENT
  Sex: Female

DRUGS (2)
  1. SIMPONI [Suspect]
     Indication: PRODUCT USED FOR UNKNOWN INDICATION
     Route: 058
     Dates: start: 20120608
  2. SIMPONI [Suspect]
     Route: 058

REACTIONS (3)
  - ABDOMINAL PAIN [None]
  - ABDOMINAL DISTENSION [None]
  - ANTINUCLEAR ANTIBODY INCREASED [None]
